FAERS Safety Report 4511005-4 (Version None)
Quarter: 2004Q4

REPORT INFORMATION
  Report Type: 
  Country: None (occurrence: None)
  Receive Date: 20040928
  Receipt Date: 20040621
  Transmission Date: 20050328
  Serious: No
  Sender: FDA-Public Use
  Company Number: 04P-163-0264362-00

PATIENT
  Age: 58 Year
  Sex: Female
  Weight: 164 kg

DRUGS (6)
  1. HUMIRA [Suspect]
     Indication: RHEUMATOID ARTHRITIS
     Dosage: 40 MG, 1 IN 14 D, SUBCUTANEOUS
     Route: 058
     Dates: start: 20040520
  2. GLIPIZIDE [Concomitant]
  3. GABAPENTIN [Concomitant]
  4. BUCINODOLOL HYDROCHLORIDE [Concomitant]
  5. ENALAPRIL [Concomitant]
  6. PANTOPRAZOLE [Concomitant]

REACTIONS (4)
  - COUGH [None]
  - EAR INFECTION [None]
  - PARAESTHESIA [None]
  - SINUSITIS [None]
